FAERS Safety Report 24307718 (Version 1)
Quarter: 2024Q3

REPORT INFORMATION
  Report Type: Spontaneous
  Country: US (occurrence: None)
  Receive Date: 20240910
  Receipt Date: 20240910
  Transmission Date: 20241016
  Serious: Yes (Other)
  Sender: Public
  Company Number: None

PATIENT
  Age: 59 Year
  Sex: Male
  Weight: 64.2 kg

DRUGS (1)
  1. PACLITAXEL [Suspect]
     Active Substance: PACLITAXEL
     Indication: Oesophageal carcinoma

REACTIONS (9)
  - Somnolence [None]
  - Chest pain [None]
  - Chest discomfort [None]
  - Dyspnoea [None]
  - Therapy cessation [None]
  - Heart rate increased [None]
  - Cold sweat [None]
  - Hyperhidrosis [None]
  - Poor venous access [None]

NARRATIVE: CASE EVENT DATE: 20240903
